FAERS Safety Report 10090452 (Version 2)
Quarter: 2014Q2

REPORT INFORMATION
  Report Type: Spontaneous
  Country: US (occurrence: US)
  Receive Date: 20140421
  Receipt Date: 20140512
  Transmission Date: 20141212
  Serious: Yes (Hospitalization)
  Sender: FDA-Public Use
  Company Number: US-BAYER-2014-056503

PATIENT
  Age: 37 Year
  Sex: Female
  Weight: 119.73 kg

DRUGS (5)
  1. YAZ [Suspect]
  2. KEFLEX [Concomitant]
  3. ANCEF [Concomitant]
  4. TYLENOL WITH CODEINE [Concomitant]
  5. FERROUS SULFATE [Concomitant]

REACTIONS (1)
  - Thrombophlebitis superficial [Recovered/Resolved]
